FAERS Safety Report 20639141 (Version 1)
Quarter: 2022Q1

REPORT INFORMATION
  Report Type: Spontaneous
  Country: US (occurrence: US)
  Receive Date: 20220326
  Receipt Date: 20220326
  Transmission Date: 20220423
  Serious: No
  Sender: FDA-Public Use
  Company Number: US-JNJFOC-20220336499

PATIENT
  Age: 73 Year
  Sex: Male

DRUGS (1)
  1. STELARA [Suspect]
     Active Substance: USTEKINUMAB
     Indication: Crohn^s disease
     Route: 058

REACTIONS (3)
  - Product dose omission issue [Unknown]
  - Product packaging issue [Unknown]
  - Therapeutic response decreased [Unknown]

NARRATIVE: CASE EVENT DATE: 20220307
